FAERS Safety Report 6721130-5 (Version None)
Quarter: 2010Q2

REPORT INFORMATION
  Report Type: 
  Country: None (occurrence: None)
  Receive Date: 20100510
  Receipt Date: 20100426
  Transmission Date: 20101027
  Serious: Yes (Other)
  Sender: FDA-Public Use
  Company Number: 2010AP000884

PATIENT
  Age: 58 Year
  Sex: Female

DRUGS (1)
  1. AMLODIPINE BESYLATE [Suspect]
     Indication: HYPERTENSION
     Dosage: 5 MG;PO;QD
     Route: 048
     Dates: start: 20081023, end: 20090520

REACTIONS (2)
  - PROCTALGIA [None]
  - RECTAL SPASM [None]
